FAERS Safety Report 12563915 (Version 2)
Quarter: 2016Q3

REPORT INFORMATION
  Report Type: Report from Study
  Country: CN (occurrence: CN)
  Receive Date: 20160716
  Receipt Date: 20160829
  Transmission Date: 20161109
  Serious: Yes (Hospitalization)
  Sender: FDA-Public Use
  Company Number: CN-ASTRAZENECA-2016SE53062

PATIENT
  Age: 12234 Day
  Sex: Male
  Weight: 86 kg

DRUGS (2)
  1. SAXAGLIPTIN [Suspect]
     Active Substance: SAXAGLIPTIN
     Indication: TYPE 2 DIABETES MELLITUS
     Route: 048
     Dates: start: 20160130
  2. GLUCOBAY [Suspect]
     Active Substance: ACARBOSE
     Indication: TYPE 2 DIABETES MELLITUS
     Dosage: TID, 300MG TOTAL DAILY DOSE
     Route: 048
     Dates: start: 20160130

REACTIONS (2)
  - Ureterolithiasis [Unknown]
  - Prepuce redundant [Unknown]

NARRATIVE: CASE EVENT DATE: 20160506
